FAERS Safety Report 13005934 (Version 1)
Quarter: 2016Q4

REPORT INFORMATION
  Report Type: Spontaneous
  Country: GB (occurrence: GB)
  Receive Date: 20161207
  Receipt Date: 20161207
  Transmission Date: 20170207
  Serious: Yes (Other)
  Sender: FDA-Public Use
  Company Number: GB-TEVA-716721ACC

PATIENT
  Age: 19 Year
  Sex: Female
  Weight: 69.85 kg

DRUGS (1)
  1. CITALOPRAM [Suspect]
     Active Substance: CITALOPRAM HYDROBROMIDE
     Indication: DEPRESSION
     Route: 048
     Dates: start: 20160928

REACTIONS (11)
  - Nausea [Recovered/Resolved]
  - Tremor [Recovered/Resolved]
  - Emotional poverty [Recovering/Resolving]
  - Photophobia [Recovering/Resolving]
  - Yawning [Recovered/Resolved]
  - Anorgasmia [Recovering/Resolving]
  - Abnormal dreams [Not Recovered/Not Resolved]
  - Bruxism [Not Recovered/Not Resolved]
  - Intentional self-injury [Unknown]
  - Salivary hypersecretion [Recovered/Resolved]
  - Depression [Unknown]

NARRATIVE: CASE EVENT DATE: 20160928
